FAERS Safety Report 9361939 (Version 1)
Quarter: 2013Q2

REPORT INFORMATION
  Report Type: Spontaneous
  Country: FR (occurrence: FR)
  Receive Date: 20130621
  Receipt Date: 20130621
  Transmission Date: 20140414
  Serious: Yes (Other)
  Sender: FDA-Public Use
  Company Number: FR-B.I. PHARMACEUTICALS,INC./RIDGEFIELD-2013-FF-01667FF

PATIENT
  Sex: Female

DRUGS (14)
  1. SPIRIVA [Suspect]
     Route: 055
  2. SERETIDE [Suspect]
     Dates: start: 2008, end: 20130423
  3. TAHOR [Suspect]
     Route: 048
  4. PLAVIX [Suspect]
     Route: 048
  5. SINGULAIR [Suspect]
     Route: 048
  6. ISOPTINE [Suspect]
     Route: 048
  7. ONGLYZA [Suspect]
     Route: 048
     Dates: start: 201301, end: 20130423
  8. OGAST [Suspect]
     Route: 048
  9. INNOVAIR [Concomitant]
     Route: 055
     Dates: start: 20130423
  10. COAPROVEL [Concomitant]
     Route: 048
  11. LASILIX [Concomitant]
     Route: 048
  12. CORVASAL [Concomitant]
     Route: 048
  13. METFORMINE [Concomitant]
     Route: 048
  14. VENTOLINE [Concomitant]
     Route: 055

REACTIONS (1)
  - Hypogammaglobulinaemia [Recovered/Resolved]
